FAERS Safety Report 26164245 (Version 1)
Quarter: 2025Q4

REPORT INFORMATION
  Report Type: Spontaneous
  Country: US (occurrence: US)
  Receive Date: 20251216
  Receipt Date: 20251216
  Transmission Date: 20260118
  Serious: No
  Sender: SANDOZ
  Company Number: US-SANDOZ-SDZ2025US094825

PATIENT
  Sex: Female

DRUGS (1)
  1. ALBUTEROL SULFATE [Suspect]
     Active Substance: ALBUTEROL SULFATE
     Indication: Sleep apnoea syndrome
     Dosage: AS NEEDED
     Route: 055
     Dates: start: 2025

REACTIONS (4)
  - Drug dose omission by device [Unknown]
  - Product prescribing issue [Unknown]
  - Device issue [Unknown]
  - Device mechanical issue [Unknown]
